FAERS Safety Report 16049026 (Version 1)
Quarter: 2019Q1

REPORT INFORMATION
  Report Type: Report from Study
  Country: US (occurrence: US)
  Receive Date: 20190307
  Receipt Date: 20190307
  Transmission Date: 20190418
  Serious: Yes (Hospitalization, Other)
  Sender: FDA-Public Use
  Company Number: US-JNJFOC-20181222775

PATIENT
  Age: 73 Year
  Sex: Male

DRUGS (15)
  1. DEFLAZACORT [Concomitant]
     Active Substance: DEFLAZACORT
  2. CITALOPRAM [Concomitant]
     Active Substance: CITALOPRAM HYDROBROMIDE
  3. FISH OIL [Concomitant]
     Active Substance: FISH OIL
  4. GLIMEPIRIDE. [Concomitant]
     Active Substance: GLIMEPIRIDE
  5. MULTIVITAMINS [Concomitant]
     Active Substance: VITAMINS
  6. CRESTOR [Concomitant]
     Active Substance: ROSUVASTATIN CALCIUM
  7. IMBRUVICA [Suspect]
     Active Substance: IBRUTINIB
     Indication: EXTRANODAL MARGINAL ZONE B-CELL LYMPHOMA (MALT TYPE)
     Dosage: 560 MG, QD
     Route: 048
     Dates: start: 20180731
  8. FOLIC ACID. [Concomitant]
     Active Substance: FOLIC ACID
  9. METFORMIN [Concomitant]
     Active Substance: METFORMIN HYDROCHLORIDE
  10. GLUTAMINE [Concomitant]
     Active Substance: GLUTAMINE
  11. ASPIRIN. [Concomitant]
     Active Substance: ASPIRIN
  12. TESTOSTERONE. [Concomitant]
     Active Substance: TESTOSTERONE
  13. IMBRUVICA [Suspect]
     Active Substance: IBRUTINIB
     Indication: NON-HODGKIN^S LYMPHOMA
     Dosage: 560 MG, QD
     Route: 048
     Dates: start: 20180731
  14. VITAMIN D3 [Concomitant]
     Active Substance: CHOLECALCIFEROL
  15. VIAGRA [Concomitant]
     Active Substance: SILDENAFIL CITRATE

REACTIONS (3)
  - Syncope [Unknown]
  - Heart rate decreased [Unknown]
  - Hypertension [Not Recovered/Not Resolved]

NARRATIVE: CASE EVENT DATE: 20190227
